FAERS Safety Report 6546545-X (Version None)
Quarter: 2010Q1

REPORT INFORMATION
  Report Type: 
  Country: None (occurrence: None)
  Receive Date: 20100120
  Receipt Date: 20091026
  Transmission Date: 20100710
  Serious: No
  Sender: FDA-Public Use
  Company Number: 2009-00689

PATIENT
  Age: 76 Year
  Sex: Female
  Weight: 54.4316 kg

DRUGS (9)
  1. COLD REMEDY GEL SWABS [Suspect]
     Dosage: Q 4 HRS FOR 1 WEEK, MAR 2009-AFTER 1 WEEK
     Dates: start: 20090301
  2. ALPHAGAN OPTH DROPS [Concomitant]
  3. COSOPT OPTH DROPS [Concomitant]
  4. LUMIGAN OPTH DROPS [Concomitant]
  5. MULTI-VITAMIN [Concomitant]
  6. FISH OIL [Concomitant]
  7. CALCIUM WITH VITAMIN D [Concomitant]
  8. VITAMIN D3 [Concomitant]
  9. ANTIBIOTICS (UNKNOWN NAME) [Concomitant]

REACTIONS (2)
  - AGEUSIA [None]
  - ANOSMIA [None]
